FAERS Safety Report 4708695-X (Version None)
Quarter: 2005Q3

REPORT INFORMATION
  Report Type: 
  Country: None (occurrence: None)
  Receive Date: 20050707
  Receipt Date: 20050630
  Transmission Date: 20060218
  Serious: Yes (Hospitalization)
  Sender: FDA-Public Use
  Company Number: PHHO2005JP10577

PATIENT
  Age: 76 Year
  Sex: Female
  Weight: 51 kg

DRUGS (13)
  1. DIOVAN [Suspect]
     Indication: HYPERTENSION
     Dosage: 80 MG / DAY
     Route: 048
     Dates: start: 20030527, end: 20040827
  2. PROCYLIN [Concomitant]
  3. MEVALOTIN [Concomitant]
  4. ASPIRIN [Concomitant]
  5. AMLODIN [Concomitant]
  6. NOVORAPID [Concomitant]
  7. AMOBAN [Concomitant]
  8. DOGMATYL [Concomitant]
  9. PAXIL [Concomitant]
  10. CYANOCOBALAMIN [Concomitant]
  11. MUCODYNE [Concomitant]
  12. TOLEDOMIN [Concomitant]
  13. GANATON [Concomitant]

REACTIONS (5)
  - ANGINA PECTORIS [None]
  - CHEST PAIN [None]
  - DERMATITIS [None]
  - ELECTROCARDIOGRAM ST SEGMENT DEPRESSION [None]
  - POLLAKIURIA [None]
